FAERS Safety Report 15279868 (Version 1)
Quarter: 2018Q3

REPORT INFORMATION
  Report Type: Spontaneous
  Country: ZA (occurrence: ZA)
  Receive Date: 20180815
  Receipt Date: 20180815
  Transmission Date: 20181010
  Serious: Yes (Hospitalization)
  Sender: FDA-Public Use
  Company Number: ZA-PFIZER INC-2018324398

PATIENT
  Sex: Female

DRUGS (9)
  1. CIRCADIN [Suspect]
     Active Substance: MELATONIN
     Dosage: 2 MG, UNK
  2. ALTOSEC /00661201/ [Suspect]
     Active Substance: OMEPRAZOLE
     Dosage: 20 MG, UNK
  3. YELATE [Suspect]
     Active Substance: DULOXETINE HYDROCHLORIDE
     Dosage: 60 MG, UNK
  4. SLOW MAG /01486809/ [Suspect]
     Active Substance: MAGNESIUM
     Dosage: 450 MG, UNK
  5. LYRICA [Suspect]
     Active Substance: PREGABALIN
     Dosage: 150 MG, UNK
  6. EPLEPTIN [Suspect]
     Active Substance: GABAPENTIN
     Dosage: 400 MG, UNK
  7. ESPIRIDE [Suspect]
     Active Substance: SULPIRIDE
     Dosage: 50 MG, UNK
  8. BIOTECH TRAZODONE [Suspect]
     Active Substance: TRAZODONE HYDROCHLORIDE
     Dosage: 50 MG, UNK
  9. DORMONOCT [Suspect]
     Active Substance: LOPRAZOLAM
     Dosage: 2 MG, UNK

REACTIONS (2)
  - Neck pain [Unknown]
  - Swelling [Unknown]
